FAERS Safety Report 5882652-2 (Version None)
Quarter: 2008Q3

REPORT INFORMATION
  Report Type: 
  Country: None (occurrence: None)
  Receive Date: 20080913
  Receipt Date: 20080811
  Transmission Date: 20090109
  Serious: Yes (Hospitalization)
  Sender: FDA-Public Use
  Company Number: US-ABBOTT-08P-163-0470116-00

PATIENT
  Weight: 62.198 kg

DRUGS (7)
  1. HUMIRA [Suspect]
     Indication: RHEUMATOID ARTHRITIS
     Dosage: EVERY OTHER PEN
     Route: 050
     Dates: start: 20080201
  2. METHOTREXATE [Concomitant]
     Indication: RHEUMATOID ARTHRITIS
     Route: 048
  3. LOTREL [Concomitant]
     Indication: HYPERTENSION
     Route: 048
  4. UNKNOWN BLOOD PRESSURE MEDICATION [Concomitant]
     Indication: HYPERTENSION
     Route: 048
  5. DEFLAZACORT [Concomitant]
     Indication: DIABETES MELLITUS
     Route: 048
  6. PIOGLITAZONE [Concomitant]
     Indication: DIABETES MELLITUS
     Route: 048
  7. METFORMIN HCL [Concomitant]
     Indication: DIABETES MELLITUS
     Route: 048

REACTIONS (3)
  - ANAEMIA [None]
  - CORONARY ARTERY DISEASE [None]
  - SYNCOPE [None]
